FAERS Safety Report 6874680-5 (Version None)
Quarter: 2010Q3

REPORT INFORMATION
  Report Type: 
  Country: None (occurrence: None)
  Receive Date: 20100722
  Receipt Date: 20100706
  Transmission Date: 20110219
  Serious: Yes (Other)
  Sender: FDA-Public Use
  Company Number: ACO_01300_2010

PATIENT
  Age: 60 Year
  Sex: Female

DRUGS (4)
  1. AMPYRA [Suspect]
     Indication: MULTIPLE SCLEROSIS
     Dosage: (10 MG BID ORAL)
     Route: 048
     Dates: start: 20100630, end: 20100630
  2. COPAXONE [Concomitant]
  3. BACTRIM [Concomitant]
  4. VITAMIN D [Concomitant]

REACTIONS (4)
  - BALANCE DISORDER [None]
  - DYSSTASIA [None]
  - HYPERHIDROSIS [None]
  - TREMOR [None]
